FAERS Safety Report 7403847 (Version 3)
Quarter: 2014Q2

REPORT INFORMATION
  Report Type: Report from Study
  Country: MX (occurrence: MX)
  Receive Date: 20100528
  Receipt Date: 20140611
  Transmission Date: 20141212
  Serious: Yes (Hospitalization)
  Sender: FDA-Public Use
  Company Number: PHHY2010MX32274

PATIENT
  Age: 74 Year
  Sex: Male

DRUGS (3)
  1. STALEVO [Suspect]
     Indication: PARKINSON^S DISEASE
     Dosage: 3 DF (3 TABLETS OF 200/100/25MG), DAILY
     Route: 048
     Dates: start: 20091121
  2. STALEVO [Suspect]
     Dosage: UNK UKN, UNK (200/150/37.5MG)
     Route: 048
  3. CO-DIOVAN [Suspect]
     Indication: HYPERTENSION
     Dosage: 1 DF (1 TABLET), UNK
     Dates: start: 20040618

REACTIONS (6)
  - Benign prostatic hyperplasia [Recovered/Resolved]
  - Urine flow decreased [Recovered/Resolved]
  - Medical device complication [Recovered/Resolved]
  - Urinary tract infection [Recovered/Resolved]
  - Speech disorder [Unknown]
  - Feeling abnormal [Unknown]
